FAERS Safety Report 26088773 (Version 1)
Quarter: 2025Q4

REPORT INFORMATION
  Report Type: Spontaneous
  Country: CA (occurrence: CA)
  Receive Date: 20251125
  Receipt Date: 20251125
  Transmission Date: 20260118
  Serious: Yes (Other)
  Sender: NOVARTIS
  Company Number: CA-002147023-NVSC2025CA177841

PATIENT
  Age: 18 Year
  Sex: Female

DRUGS (1)
  1. KESIMPTA [Suspect]
     Active Substance: OFATUMUMAB
     Indication: Relapsing-remitting multiple sclerosis
     Dosage: 20 MG, QMO
     Route: 058

REACTIONS (5)
  - Nasal congestion [Unknown]
  - Oropharyngeal pain [Unknown]
  - Cough [Unknown]
  - Sputum discoloured [Unknown]
  - Viral infection [Unknown]
